FAERS Safety Report 19933384 (Version 1)
Quarter: 2021Q4

REPORT INFORMATION
  Report Type: Spontaneous
  Country: US (occurrence: US)
  Receive Date: 20211006
  Receipt Date: 20211006
  Transmission Date: 20220303
  Serious: Yes (Hospitalization)
  Sender: FDA-Public Use
  Company Number: None

PATIENT
  Age: 64 Year
  Sex: Male
  Weight: 95.25 kg

DRUGS (1)
  1. SULFAMETHOXAZOLE\TRIMETHOPRIM [Suspect]
     Active Substance: SULFAMETHOXAZOLE\TRIMETHOPRIM
     Indication: Wound
     Dosage: ?          OTHER DOSE:800/160MG;
     Route: 048
     Dates: start: 20210802, end: 20210813

REACTIONS (6)
  - Dyspnoea [None]
  - Hyperkalaemia [None]
  - Acute kidney injury [None]
  - Dyspnoea [None]
  - Bradycardia [None]
  - Asthenia [None]

NARRATIVE: CASE EVENT DATE: 20210813
